FAERS Safety Report 8484236 (Version 3)
Quarter: 2013Q1

REPORT INFORMATION
  Report Type: Spontaneous
  Country: FR (occurrence: FR)
  Receive Date: 20120330
  Receipt Date: 20130103
  Transmission Date: 20140127
  Serious: Yes (Hospitalization)
  Sender: FDA-Public Use
  Company Number: PHHY2012FR025921

PATIENT
  Age: 90 Year
  Sex: Female
  Weight: 42 kg

DRUGS (2)
  1. FEMARA [Suspect]
     Indication: BREAST CANCER
     Dosage: 2.5 MG, UNK
     Route: 048
     Dates: start: 20120302, end: 20120309
  2. FEMARA [Suspect]
     Dosage: 2.5 MG, UNK
     Route: 048

REACTIONS (13)
  - General physical health deterioration [Unknown]
  - Atrial fibrillation [Unknown]
  - Cardiac failure [Recovered/Resolved]
  - Hypotension [Unknown]
  - Cough [Unknown]
  - Pulmonary oedema [Recovered/Resolved]
  - Tachycardia [Unknown]
  - Fatigue [Unknown]
  - Dyspnoea [Unknown]
  - Oxygen saturation decreased [Unknown]
  - Pulmonary embolism [Unknown]
  - Back pain [Unknown]
  - Overdose [Unknown]
